FAERS Safety Report 4295191-X (Version None)
Quarter: 2004Q1

REPORT INFORMATION
  Report Type: 
  Country: None (occurrence: None)
  Receive Date: 20040216
  Receipt Date: 20040205
  Transmission Date: 20041129
  Serious: Yes (Other)
  Sender: FDA-Public Use
  Company Number: PHBS2004IT01974

PATIENT
  Age: 37 Year
  Sex: Female

DRUGS (1)
  1. VOLTAREN [Suspect]
     Indication: BACK PAIN

REACTIONS (6)
  - APPLICATION SITE OEDEMA [None]
  - ECZEMA [None]
  - ERYTHEMA [None]
  - PRURITUS [None]
  - RASH VESICULAR [None]
  - SKIN TEST POSITIVE [None]
